FAERS Safety Report 13550547 (Version 1)
Quarter: 2017Q2

REPORT INFORMATION
  Report Type: Spontaneous
  Country: US (occurrence: US)
  Receive Date: 20170516
  Receipt Date: 20170516
  Transmission Date: 20170830
  Serious: Yes (Hospitalization)
  Sender: FDA-Public Use
  Company Number: None

PATIENT
  Age: 56 Year
  Sex: Female

DRUGS (1)
  1. ORENCIA [Suspect]
     Active Substance: ABATACEPT
     Indication: RHEUMATOID ARTHRITIS
     Dosage: 125MG/ML MONTHLY SUBCUTANEOUSLY
     Route: 058
     Dates: start: 20170222

REACTIONS (3)
  - Nephrolithiasis [None]
  - Abdominal pain upper [None]
  - Drug dose omission [None]
